FAERS Safety Report 11543727 (Version 6)
Quarter: 2015Q4

REPORT INFORMATION
  Report Type: Spontaneous
  Country: IT (occurrence: IT)
  Receive Date: 20150924
  Receipt Date: 20151029
  Transmission Date: 20160304
  Serious: Yes (Hospitalization, Other)
  Sender: FDA-Public Use
  Company Number: IT-ROCHE-1635164

PATIENT
  Age: 52 Year
  Sex: Female

DRUGS (24)
  1. METHOTREXATE [Suspect]
     Active Substance: METHOTREXATE
     Indication: POLYMYOSITIS
     Route: 030
     Dates: start: 20100401, end: 20121217
  2. METHOTREXATE [Suspect]
     Active Substance: METHOTREXATE
     Indication: RHEUMATOID ARTHRITIS
     Route: 030
     Dates: start: 201202
  3. MERCAPTOPURINE. [Suspect]
     Active Substance: MERCAPTOPURINE
     Indication: PRODUCT USED FOR UNKNOWN INDICATION
     Route: 042
     Dates: start: 201212
  4. PREDNISONE. [Suspect]
     Active Substance: PREDNISONE
     Indication: PRODUCT USED FOR UNKNOWN INDICATION
     Route: 065
  5. AZITHROMYCINE [Suspect]
     Active Substance: AZITHROMYCIN DIHYDRATE
     Indication: PRODUCT USED FOR UNKNOWN INDICATION
     Route: 065
  6. NATECAL D3 [Concomitant]
     Active Substance: CALCIUM CARBONATE\CHOLECALCIFEROL
     Indication: OSTEOPOROSIS
     Dosage: ORODISPERSIBLE TABLET
     Route: 048
  7. MABTHERA [Suspect]
     Active Substance: RITUXIMAB
     Route: 042
     Dates: start: 20100401, end: 20110401
  8. METHOTREXATE [Suspect]
     Active Substance: METHOTREXATE
     Route: 030
     Dates: start: 20100401, end: 20111127
  9. LANSOPRAZOLE. [Concomitant]
     Active Substance: LANSOPRAZOLE
     Indication: GASTRITIS EROSIVE
     Dosage: HARD CAPSULE
     Route: 048
  10. CARDIOASPIRIN [Concomitant]
     Active Substance: ASPIRIN
     Indication: THROMBOSIS PROPHYLAXIS
     Dosage: PERIOD 6 YEARS
     Route: 048
  11. EUTIROX [Concomitant]
     Active Substance: LEVOTHYROXINE SODIUM
     Indication: HYPOTHYROIDISM
     Route: 048
  12. ROACTEMRA [Suspect]
     Active Substance: TOCILIZUMAB
     Route: 042
     Dates: start: 201212, end: 20121217
  13. MABTHERA [Suspect]
     Active Substance: RITUXIMAB
     Indication: RHEUMATOID ARTHRITIS
     Route: 041
     Dates: start: 20100401
  14. DELTACORTENE [Suspect]
     Active Substance: PREDNISONE
     Indication: POLYMYOSITIS
  15. ROACTEMRA [Suspect]
     Active Substance: TOCILIZUMAB
     Indication: RHEUMATOID ARTHRITIS
     Route: 042
     Dates: start: 20121022
  16. MABTHERA [Suspect]
     Active Substance: RITUXIMAB
     Route: 042
     Dates: start: 201202
  17. PREDNISONE. [Suspect]
     Active Substance: PREDNISONE
     Route: 065
  18. DELTACORTENE [Concomitant]
     Active Substance: PREDNISONE
     Indication: POLYMYOSITIS
     Dosage: PERIOD 8 YEARS
     Route: 048
     Dates: start: 20140601
  19. FORSTEO [Concomitant]
     Active Substance: TERIPARATIDE
     Indication: OSTEOPOROSIS
     Route: 058
  20. MABTHERA [Suspect]
     Active Substance: RITUXIMAB
     Indication: POLYMYOSITIS
     Dosage: WEEKLY FOR 4 WEEKS
     Route: 042
     Dates: start: 201104
  21. DELTACORTENE [Suspect]
     Active Substance: PREDNISONE
     Indication: RHEUMATOID ARTHRITIS
     Route: 048
     Dates: start: 20040601, end: 20111127
  22. ACTONEL [Concomitant]
     Active Substance: RISEDRONATE SODIUM
     Indication: OSTEOPOROSIS
     Route: 048
  23. SANDIMMUN NEORAL [Suspect]
     Active Substance: CYCLOSPORINE
     Indication: RHEUMATOID ARTHRITIS
     Route: 048
     Dates: start: 20100401, end: 20111127
  24. SANDIMMUN NEORAL [Suspect]
     Active Substance: CYCLOSPORINE
     Indication: POLYMYOSITIS

REACTIONS (12)
  - Blood cholesterol increased [Unknown]
  - Oropharyngitis fungal [Recovered/Resolved]
  - Pyrexia [Recovered/Resolved]
  - Myositis [Recovered/Resolved]
  - Chills [Unknown]
  - Hypertransaminasaemia [Recovered/Resolved]
  - Pyrexia [Unknown]
  - Blood triglycerides increased [Unknown]
  - Urinary tract infection [Recovered/Resolved]
  - Arthritis [Recovered/Resolved]
  - Upper respiratory tract infection [Unknown]
  - High density lipoprotein increased [Unknown]

NARRATIVE: CASE EVENT DATE: 20111127
